FAERS Safety Report 21929583 (Version 1)
Quarter: 2023Q1

REPORT INFORMATION
  Report Type: Spontaneous
  Country: IN (occurrence: IN)
  Receive Date: 20230131
  Receipt Date: 20230131
  Transmission Date: 20230417
  Serious: Yes (Other)
  Sender: FDA-Public Use
  Company Number: IN-SUN PHARMACEUTICAL INDUSTRIES LTD-2023R1-375492

PATIENT
  Age: 24 Year
  Sex: Male

DRUGS (6)
  1. TERBINAFINE [Suspect]
     Active Substance: TERBINAFINE
     Indication: Tinea infection
     Dosage: 500 MILLIGRAM, QD
     Route: 065
  2. TERBINAFINE [Suspect]
     Active Substance: TERBINAFINE
     Dosage: 250 MILLIGRAM, BID
     Route: 065
  3. FLUCONAZOLE [Suspect]
     Active Substance: FLUCONAZOLE
     Indication: Tinea infection
     Dosage: 150-300 MILLIGRAM, WEEKLY
     Route: 065
  4. GRISEOFULVIN [Suspect]
     Active Substance: GRISEOFULVIN
     Indication: Tinea infection
     Dosage: 500 MILLIGRAM, QD
     Route: 065
  5. ITRACONAZOLE [Suspect]
     Active Substance: ITRACONAZOLE
     Indication: Tinea infection
     Dosage: 100-200 MILLIGRAM, QD
     Route: 065
  6. KETOCONAZOLE [Suspect]
     Active Substance: KETOCONAZOLE
     Indication: Tinea infection
     Dosage: 200 MILLIGRAM, BID
     Route: 065

REACTIONS (2)
  - Multiple-drug resistance [Unknown]
  - Therapy non-responder [Unknown]
